FAERS Safety Report 8460610-1 (Version None)
Quarter: 2012Q2

REPORT INFORMATION
  Report Type: 
  Country: None (occurrence: None)
  Receive Date: 20120622
  Receipt Date: 20120612
  Transmission Date: 20120825
  Serious: Yes (Hospitalization, Other)
  Sender: FDA-Public Use
  Company Number: US-ABBOTT-12P-163-0945365-00

PATIENT
  Sex: Male
  Weight: 97.61 kg

DRUGS (7)
  1. NIASPAN [Suspect]
     Indication: HIGH DENSITY LIPOPROTEIN DECREASED
     Dosage: 1 G IN THE MORNING, 1 G AT DINNER TIME
     Dates: start: 20120601
  2. NIASPAN [Suspect]
     Indication: BLOOD CHOLESTEROL INCREASED
     Dosage: 1 G IN THE MORNING, 1 G AT DINNER TIME
     Dates: start: 20090101, end: 20111201
  3. NIASPAN [Suspect]
     Indication: LOW DENSITY LIPOPROTEIN INCREASED
     Dosage: DAILY DOSE 3 GRAMS
     Dates: start: 20111201, end: 20120501
  4. NIASPAN [Suspect]
     Indication: BLOOD TRIGLYCERIDES INCREASED
     Dates: start: 20080101, end: 20090101
  5. MELOXICAM [Concomitant]
     Indication: ARTHRALGIA
  6. LISINOPRIL [Concomitant]
     Indication: HYPERTENSION
  7. FISH OIL [Concomitant]
     Indication: BLOOD CHOLESTEROL INCREASED

REACTIONS (12)
  - INAPPROPRIATE SCHEDULE OF DRUG ADMINISTRATION [None]
  - BLOOD TRIGLYCERIDES INCREASED [None]
  - CARTILAGE INJURY [None]
  - BLOOD PRESSURE DECREASED [None]
  - HEPATIC ENZYME INCREASED [None]
  - BIOPSY PROSTATE ABNORMAL [None]
  - FLUSHING [None]
  - PROSTATIC SPECIFIC ANTIGEN INCREASED [None]
  - PRECANCEROUS CELLS PRESENT [None]
  - ARTHRALGIA [None]
  - ABDOMINAL DISCOMFORT [None]
  - BLOOD CHOLESTEROL INCREASED [None]
